FAERS Safety Report 10074531 (Version 1)
Quarter: 2014Q2

REPORT INFORMATION
  Report Type: Spontaneous
  Country: US (occurrence: US)
  Receive Date: 20140412
  Receipt Date: 20140412
  Transmission Date: 20141212
  Serious: No
  Sender: FDA-Public Use
  Company Number: US-009507513-1404USA005626

PATIENT
  Sex: Male

DRUGS (1)
  1. COPPERTONE SPORT CONTINUOUS SPRAY SPF 70 [Suspect]
     Indication: PRODUCT USED FOR UNKNOWN INDICATION
     Dosage: UNK UNK, UNKNOWN
     Route: 061

REACTIONS (2)
  - Sunburn [Unknown]
  - Expired product administered [Unknown]
